FAERS Safety Report 17905950 (Version 3)
Quarter: 2023Q1

REPORT INFORMATION
  Report Type: Report from Study
  Country: US (occurrence: US)
  Receive Date: 20200617
  Receipt Date: 20230313
  Transmission Date: 20230418
  Serious: Yes (Hospitalization)
  Sender: FDA-Public Use
  Company Number: US-SHIRE-US202019739

PATIENT
  Age: 71 Year
  Sex: Female

DRUGS (4)
  1. TEDUGLUTIDE [Suspect]
     Active Substance: TEDUGLUTIDE
     Indication: Short-bowel syndrome
     Dosage: 1.4 MILLIGRAM, QD
     Route: 058
     Dates: start: 20191104
  2. TEDUGLUTIDE [Suspect]
     Active Substance: TEDUGLUTIDE
     Indication: Short-bowel syndrome
     Dosage: 1.4 MILLIGRAM, QD
     Route: 058
     Dates: start: 20191104
  3. TEDUGLUTIDE [Suspect]
     Active Substance: TEDUGLUTIDE
     Indication: Short-bowel syndrome
     Dosage: 1.4 MILLIGRAM, QD
     Route: 058
     Dates: start: 20191104
  4. TEDUGLUTIDE [Suspect]
     Active Substance: TEDUGLUTIDE
     Indication: Short-bowel syndrome
     Dosage: 1.4 MILLIGRAM, QD
     Route: 058
     Dates: start: 20191104

REACTIONS (5)
  - Dehydration [Recovering/Resolving]
  - Pulmonary mass [Recovering/Resolving]
  - Blood pressure increased [Recovering/Resolving]
  - Dyspnoea [Recovering/Resolving]
  - Blood creatinine increased [Unknown]

NARRATIVE: CASE EVENT DATE: 20211013
